FAERS Safety Report 18145290 (Version 1)
Quarter: 2020Q3

REPORT INFORMATION
  Report Type: Spontaneous
  Country: US (occurrence: US)
  Receive Date: 20200813
  Receipt Date: 20200813
  Transmission Date: 20201103
  Serious: Yes (Other)
  Sender: FDA-Public Use
  Company Number: None

PATIENT
  Age: 52 Year
  Sex: Male
  Weight: 96.2 kg

DRUGS (5)
  1. DEXAMETHASONE  10MG IV BID [Concomitant]
     Dates: start: 20200808, end: 20200813
  2. ENOXAPARIN 40MG SUBCUTANEOUS Q12H [Concomitant]
     Dates: start: 20200808, end: 20200813
  3. REMDESIVIR. [Suspect]
     Active Substance: REMDESIVIR
     Indication: COVID-19
     Route: 042
     Dates: start: 20200809, end: 20200811
  4. AZITHROMYCIN 500MG IV [Concomitant]
     Active Substance: AZITHROMYCIN ANHYDROUS
     Dates: start: 20200807, end: 20200809
  5. CEFTRIAXONE 1GM IV [Concomitant]
     Dates: start: 20200807, end: 20200809

REACTIONS (1)
  - Bradycardia [None]

NARRATIVE: CASE EVENT DATE: 20200810
